FAERS Safety Report 7326943-7 (Version None)
Quarter: 2011Q1

REPORT INFORMATION
  Report Type: 
  Country: None (occurrence: None)
  Receive Date: 20110302
  Receipt Date: 20110225
  Transmission Date: 20110831
  Serious: Yes (Hospitalization)
  Sender: FDA-Public Use
  Company Number: DE-PFIZER INC-2011032177

PATIENT
  Age: 55 Year
  Sex: Female

DRUGS (8)
  1. PASPERTIN [Concomitant]
     Indication: NAUSEA
     Dosage: UNK
     Dates: start: 19610101
  2. DOXEPIN [Suspect]
     Indication: ANXIETY
  3. TRAMADOL [Concomitant]
  4. TREVILOR RETARD [Suspect]
     Indication: DEPRESSION
     Dosage: 37.5 MG, 1X/DAY
     Dates: start: 20110215
  5. MORPHINE [Suspect]
     Dosage: UNK
     Dates: end: 20090601
  6. DOXEPIN [Suspect]
     Indication: DEPRESSION
  7. TAVOR [Concomitant]
  8. TREVILOR RETARD [Suspect]
     Indication: ANXIETY

REACTIONS (7)
  - HYPERHIDROSIS [None]
  - TREMOR [None]
  - DRUG EFFECT DECREASED [None]
  - DYSARTHRIA [None]
  - RESTLESSNESS [None]
  - DRUG WITHDRAWAL SYNDROME [None]
  - DYSKINESIA [None]
